FAERS Safety Report 7129433-X (Version None)
Quarter: 2010Q4

REPORT INFORMATION
  Report Type: 
  Country: None (occurrence: None)
  Receive Date: 20101104
  Receipt Date: 20101026
  Transmission Date: 20110411
  Serious: Yes (Other)
  Sender: FDA-Public Use
  Company Number: 2010SP052465

PATIENT
  Age: 45 Year
  Sex: Male

DRUGS (1)
  1. SAPHRIS [Suspect]
     Indication: SCHIZOPHRENIA
     Dosage: SEE CONT PAGE; 5 MG SL TWICE PER DAY; SUBLINGUAL, 10 MG BID, SL
     Route: 060

REACTIONS (1)
  - PARANOIA [None]
